FAERS Safety Report 16571202 (Version 1)
Quarter: 2019Q3

REPORT INFORMATION
  Report Type: Spontaneous
  Country: US (occurrence: US)
  Receive Date: 20190531
  Receipt Date: 20190531
  Transmission Date: 20191004
  Serious: No
  Sender: FDA-Public Use
  Company Number: None

PATIENT
  Age: 65 Year
  Sex: Female

DRUGS (1)
  1. TACROLIMUS CAP 1MG [Suspect]
     Active Substance: TACROLIMUS
     Route: 048
     Dates: start: 201804

REACTIONS (5)
  - Hypertension [None]
  - Product substitution issue [None]
  - Weight decreased [None]
  - Back pain [None]
  - Fall [None]

NARRATIVE: CASE EVENT DATE: 20190531
